FAERS Safety Report 10073004 (Version 2)
Quarter: 2014Q2

REPORT INFORMATION
  Report Type: Report from Study
  Country: US (occurrence: US)
  Receive Date: 20140411
  Receipt Date: 20140515
  Transmission Date: 20141212
  Serious: Yes (Other)
  Sender: FDA-Public Use
  Company Number: US-SA-2014SA040585

PATIENT
  Age: 80 Year
  Sex: Female

DRUGS (3)
  1. LANTUS SOLOSTAR [Suspect]
     Indication: PRODUCT USED FOR UNKNOWN INDICATION
     Dosage: DOSE: 40 UNITS IN MORNING AND 20 UNITS AT NIGHT
     Route: 065
     Dates: start: 2013
  2. SOLOSTAR [Concomitant]
     Indication: DEVICE THERAPY
     Dates: start: 2013
  3. ANTINEOPLASTIC AGENTS [Concomitant]
     Dates: start: 2012

REACTIONS (3)
  - Dementia [Unknown]
  - Alopecia [Recovering/Resolving]
  - Drug administration error [Unknown]
